FAERS Safety Report 9150250 (Version 1)
Quarter: 2013Q1

REPORT INFORMATION
  Report Type: Spontaneous
  Country: US (occurrence: None)
  Receive Date: 20130204
  Receipt Date: 20130204
  Transmission Date: 20140127
  Serious: Yes (Other)
  Sender: FDA-Public Use
  Company Number: 2013EXPUS00069

PATIENT
  Age: 42 Year
  Sex: Female
  Weight: 56.2 kg

DRUGS (1)
  1. EXPAREL (BUPIVACAINE) LIPOSOME INJECTABLE SUSPENSION, MG/ML [Suspect]
     Indication: POSTOPERATIVE ANALGESIA
     Dosage: 266MG/20ML,1X
     Dates: start: 20130110, end: 20130110

REACTIONS (4)
  - Post procedural haematoma [None]
  - Breast swelling [None]
  - Breast pain [None]
  - Ecchymosis [None]
